FAERS Safety Report 8096148-3 (Version None)
Quarter: 2012Q1

REPORT INFORMATION
  Report Type: 
  Country: None (occurrence: None)
  Receive Date: 20120131
  Receipt Date: 20120123
  Transmission Date: 20120608
  Serious: Yes (Life-Threatening, Hospitalization)
  Sender: FDA-Public Use
  Company Number: JP-GLAXOSMITHKLINE-B0771988A

PATIENT
  Sex: Female

DRUGS (6)
  1. HALCION [Concomitant]
     Route: 048
  2. SILECE [Concomitant]
     Route: 065
  3. LAMICTAL [Suspect]
     Indication: BIPOLAR DISORDER
     Dosage: 100MG PER DAY
     Route: 048
     Dates: start: 20111006, end: 20111219
  4. AMITRIPTYLINE HCL [Concomitant]
     Route: 048
  5. CLONAZEPAM [Concomitant]
     Route: 048
  6. ZYPREXA [Concomitant]
     Route: 048

REACTIONS (7)
  - SEPSIS [None]
  - SWELLING FACE [None]
  - TOXIC SKIN ERUPTION [None]
  - DEVICE RELATED INFECTION [None]
  - GASTRIC PERFORATION [None]
  - LARYNGEAL OEDEMA [None]
  - DRUG ERUPTION [None]
